FAERS Safety Report 11273801 (Version 1)
Quarter: 2015Q3

REPORT INFORMATION
  Report Type: Spontaneous
  Country: US (occurrence: US)
  Receive Date: 20150715
  Receipt Date: 20150715
  Transmission Date: 20151125
  Serious: No
  Sender: FDA-Public Use
  Company Number: US-ENDO PHARMACEUTICALS INC.-201503186

PATIENT
  Age: 40 Year
  Sex: Male
  Weight: 90.8 kg

DRUGS (2)
  1. EDEX [Suspect]
     Active Substance: ALPROSTADIL
     Indication: PRODUCT USED FOR UNKNOWN INDICATION
     Route: 017
  2. OPIUM TINCTURE [Concomitant]
     Active Substance: OPIUM TINCTURE

REACTIONS (2)
  - Underdose [Not Recovered/Not Resolved]
  - Device malfunction [Not Recovered/Not Resolved]

NARRATIVE: CASE EVENT DATE: 201503
